FAERS Safety Report 9397450 (Version 2)
Quarter: 2013Q3

REPORT INFORMATION
  Report Type: Spontaneous
  Country: US (occurrence: US)
  Receive Date: 20130712
  Receipt Date: 20130719
  Transmission Date: 20140515
  Serious: Yes (Other)
  Sender: FDA-Public Use
  Company Number: US-PFIZER INC-2013204250

PATIENT
  Age: 49 Year
  Sex: Female
  Weight: 71.66 kg

DRUGS (5)
  1. PRISTIQ [Suspect]
     Indication: DEPRESSION
     Dosage: 50 MG DAILY
  2. NEURONTIN [Suspect]
     Indication: FIBROMYALGIA
     Dosage: 600 MG, 3X/DAY
  3. PROTONIX [Suspect]
     Indication: GASTROOESOPHAGEAL REFLUX DISEASE
     Dosage: 40 MG DAILY
  4. XANAX [Suspect]
     Indication: ANXIETY
     Dosage: HALF OF 2 MG, 3X/DAY
  5. LORTAB [Concomitant]
     Indication: PAIN
     Dosage: 10/500 MG AS NEEDED

REACTIONS (4)
  - Breast cancer [Unknown]
  - Anxiety [Unknown]
  - Depressed mood [Unknown]
  - Feeling abnormal [Unknown]
